FAERS Safety Report 9572118 (Version 1)
Quarter: 2013Q3

REPORT INFORMATION
  Report Type: Spontaneous
  Country: US (occurrence: None)
  Receive Date: 20130930
  Receipt Date: 20130930
  Transmission Date: 20140515
  Serious: Yes (Hospitalization)
  Sender: FDA-Public Use
  Company Number: None

PATIENT
  Age: 65 Year
  Sex: Female
  Weight: 84.1 kg

DRUGS (11)
  1. CARBOPLATIN [Suspect]
     Dates: end: 2013
  2. PACLITAXEL [Suspect]
     Dates: end: 20130522
  3. ATIVAN [Concomitant]
  4. COLACE [Concomitant]
  5. COMPAZINE [Concomitant]
  6. LOVENOX [Concomitant]
  7. MILK OF MAGNESIA [Concomitant]
  8. MOTRIN [Concomitant]
  9. SENNA TABLETS [Concomitant]
  10. TYLENOL [Concomitant]
  11. ZOFRAN [Concomitant]

REACTIONS (4)
  - Diarrhoea [None]
  - Febrile neutropenia [None]
  - Thrombocytopenia [None]
  - Hypokalaemia [None]
